FAERS Safety Report 24543596 (Version 2)
Quarter: 2025Q1

REPORT INFORMATION
  Report Type: Spontaneous
  Country: JP (occurrence: JP)
  Receive Date: 20241024
  Receipt Date: 20250107
  Transmission Date: 20250409
  Serious: Yes (Other)
  Sender: AMGEN
  Company Number: JP-KISSEI-TV20240810_P_1

PATIENT
  Age: 8 Decade
  Sex: Male

DRUGS (8)
  1. TAVNEOS [Suspect]
     Active Substance: AVACOPAN
     Indication: Microscopic polyangiitis
     Route: 048
  2. PREDNISOLONE [Concomitant]
     Active Substance: PREDNISOLONE
     Indication: Microscopic polyangiitis
     Dosage: 40 MILLIGRAM, QD
     Route: 065
  3. PREDNISOLONE [Concomitant]
     Active Substance: PREDNISOLONE
     Dosage: 30 MILLIGRAM, QD
     Route: 065
  4. PREDNISOLONE [Concomitant]
     Active Substance: PREDNISOLONE
     Dosage: 20 MILLIGRAM, QD
     Route: 065
  5. RITUXIMAB [Concomitant]
     Active Substance: RITUXIMAB
     Indication: Microscopic polyangiitis
     Route: 040
  6. RITUXIMAB [Concomitant]
     Active Substance: RITUXIMAB
     Route: 040
  7. RITUXIMAB [Concomitant]
     Active Substance: RITUXIMAB
     Route: 040
  8. RITUXIMAB [Concomitant]
     Active Substance: RITUXIMAB
     Route: 040

REACTIONS (1)
  - Diabetes mellitus [Unknown]
